FAERS Safety Report 8746130 (Version 2)
Quarter: 2012Q4

REPORT INFORMATION
  Report Type: 
  Country: CA (occurrence: CA)
  Receive Date: 20120827
  Receipt Date: 20120926
  Transmission Date: 20130627
  Serious: Yes (Other)
  Sender: FDA-Public Use
  Company Number: PHHY2012CA073332

PATIENT
  Age: 82 None
  Sex: Female
  Weight: 56.8 kg

DRUGS (6)
  1. ACLASTA [Suspect]
     Indication: OSTEOPOROSIS
     Dosage: UNK
     Route: 042
     Dates: start: 20101117
  2. ACLASTA [Suspect]
     Dosage: UNK
     Route: 042
     Dates: start: 20111118
  3. NASONEX [Concomitant]
  4. THYROID [Concomitant]
  5. PARIET [Concomitant]
  6. DICLOFENAC [Concomitant]

REACTIONS (20)
  - Cerebrovascular accident [Unknown]
  - Pineal gland cyst [Recovered/Resolved]
  - Gait disturbance [Recovered/Resolved]
  - Balance disorder [Recovered/Resolved]
  - Arteriosclerosis [Recovered/Resolved]
  - Left ventricular hypertrophy [Recovered/Resolved]
  - Diastolic dysfunction [Recovered/Resolved]
  - Aortic valve sclerosis [Recovered/Resolved]
  - Aortic valve incompetence [Recovered/Resolved]
  - Mitral valve calcification [Recovered/Resolved]
  - Mitral valve incompetence [Recovered/Resolved]
  - Tricuspid valve incompetence [Recovered/Resolved]
  - Dilatation atrial [Recovered/Resolved]
  - Blindness [Recovered/Resolved]
  - Amaurosis fugax [Unknown]
  - Vision blurred [Recovered/Resolved]
  - Coordination abnormal [Recovered/Resolved]
  - Fall [Recovered/Resolved]
  - Hypertension [Unknown]
  - Headache [Recovered/Resolved]
